FAERS Safety Report 8142650-5 (Version None)
Quarter: 2012Q1

REPORT INFORMATION
  Report Type: 
  Country: None (occurrence: None)
  Receive Date: 20120216
  Receipt Date: 20120210
  Transmission Date: 20120608
  Serious: Yes (Death, Hospitalization)
  Sender: FDA-Public Use
  Company Number: US-ABBOTT-10P-163-0653079-00

PATIENT
  Weight: 83.536 kg

DRUGS (12)
  1. HUMIRA [Suspect]
     Indication: CROHN'S DISEASE
     Dates: start: 20090501
  2. FOSAMAX [Concomitant]
     Indication: PRODUCT USED FOR UNKNOWN INDICATION
  3. VITAMIN E [Concomitant]
     Indication: VITAMIN SUPPLEMENTATION
  4. ASACOL [Concomitant]
     Indication: PRODUCT USED FOR UNKNOWN INDICATION
  5. SIMVASTATIN [Concomitant]
     Indication: PRODUCT USED FOR UNKNOWN INDICATION
  6. ASCORBIC ACID [Concomitant]
     Indication: VITAMIN SUPPLEMENTATION
  7. FOLIC ACID [Concomitant]
     Indication: VITAMIN SUPPLEMENTATION
  8. PREDNISONE TAB [Concomitant]
     Indication: CROHN'S DISEASE
  9. HUMIRA [Suspect]
     Dates: end: 20100201
  10. MERCAPTOPURINE [Concomitant]
     Indication: CROHN'S DISEASE
  11. CALCIUM [Concomitant]
     Indication: MINERAL SUPPLEMENTATION
  12. SEROQUEL [Concomitant]
     Indication: PRODUCT USED FOR UNKNOWN INDICATION

REACTIONS (17)
  - SPINAL CORD COMPRESSION [None]
  - NAUSEA [None]
  - CHEST PAIN [None]
  - SEPSIS [None]
  - DEVICE RELATED INFECTION [None]
  - DYSPNOEA [None]
  - PNEUMONIA [None]
  - COLON CANCER METASTATIC [None]
  - IMMUNOSUPPRESSION [None]
  - PARAESTHESIA [None]
  - GASTROINTESTINAL HAEMORRHAGE [None]
  - HAEMOGLOBIN DECREASED [None]
  - BLOOD PRODUCT TRANSFUSION DEPENDENT [None]
  - DYSSTASIA [None]
  - GASTROINTESTINAL INFLAMMATION [None]
  - VOMITING [None]
  - LOWER GASTROINTESTINAL HAEMORRHAGE [None]
